FAERS Safety Report 4845581-9 (Version None)
Quarter: 2005Q4

REPORT INFORMATION
  Report Type: 
  Country: None (occurrence: None)
  Receive Date: 20051201
  Receipt Date: 20051116
  Transmission Date: 20060501
  Serious: Yes (Hospitalization, Other)
  Sender: FDA-Public Use
  Company Number: 2005BI014865

PATIENT
  Sex: Female
  Weight: 86.1834 kg

DRUGS (2)
  1. AVONEX [Suspect]
     Indication: MULTIPLE SCLEROSIS
     Dosage: 30 UG;QW;IM
     Route: 030
     Dates: start: 20030808, end: 20050802
  2. METHADONE [Concomitant]

REACTIONS (14)
  - APPENDICECTOMY [None]
  - CHOLECYSTECTOMY [None]
  - CONVULSION [None]
  - DEPRESSION [None]
  - DRY MOUTH [None]
  - HAEMORRHAGIC DISORDER [None]
  - HYPOTHERMIA [None]
  - HYSTERECTOMY [None]
  - OVARIAN OPERATION [None]
  - SLEEP APNOEA SYNDROME [None]
  - SPINAL FUSION SURGERY [None]
  - SPINAL OPERATION [None]
  - TONSILLECTOMY [None]
  - UPPER LIMB FRACTURE [None]
